FAERS Safety Report 9580115 (Version 2)
Quarter: 2013Q4

REPORT INFORMATION
  Report Type: Spontaneous
  Country: GB (occurrence: GB)
  Receive Date: 20131002
  Receipt Date: 20131002
  Transmission Date: 20140711
  Serious: Yes (Hospitalization, Other)
  Sender: FDA-Public Use
  Company Number: GB-009507513-1202GBR00024

PATIENT
  Age: 31 Year
  Sex: Female
  Weight: 46 kg

DRUGS (5)
  1. MONTELUKAST SODIUM [Suspect]
     Indication: ASTHMA
     Dosage: 10 MG, FREQUENCY UNKNOWN
     Route: 048
     Dates: start: 20110601, end: 20120116
  2. ACETAMINOPHEN (+) CODEINE PHOSPHATE [Concomitant]
     Indication: PAIN
     Dosage: UNKNOWN
     Route: 048
  3. RIZATRIPTAN BENZOATE [Concomitant]
     Indication: MIGRAINE
     Dosage: 10 MG, FREQUENCY UNKNOWN
     Route: 048
  4. ALBUTEROL [Concomitant]
     Indication: ASTHMA
     Dosage: 1 DF, FREQUENCY UNKNOWN
     Route: 055
  5. SERETIDE [Concomitant]
     Indication: ASTHMA
     Dosage: 2 DF, FREQUENCY UNKNOWN
     Route: 055

REACTIONS (6)
  - Hepatitis [Recovering/Resolving]
  - Liver function test abnormal [Recovering/Resolving]
  - Abdominal pain [Unknown]
  - Nausea [Unknown]
  - Vomiting [Unknown]
  - Transaminases increased [Recovering/Resolving]
